FAERS Safety Report 16386552 (Version 1)
Quarter: 2019Q2

REPORT INFORMATION
  Report Type: Report from Study
  Country: None (occurrence: US)
  Receive Date: 20190604
  Receipt Date: 20190604
  Transmission Date: 20190711
  Serious: Yes (Hospitalization)
  Sender: FDA-Public Use
  Company Number: US-ABBVIE-19K-163-2799404-00

PATIENT
  Age: 45 Year
  Sex: Male

DRUGS (3)
  1. HUMIRA [Suspect]
     Active Substance: ADALIMUMAB
     Route: 058
     Dates: start: 2019
  2. FLAGYL [Suspect]
     Active Substance: METRONIDAZOLE\METRONIDAZOLE HYDROCHLORIDE
     Indication: PRODUCT USED FOR UNKNOWN INDICATION
     Route: 065
     Dates: start: 2019, end: 201905
  3. HUMIRA [Suspect]
     Active Substance: ADALIMUMAB
     Indication: CROHN^S DISEASE
     Route: 058
     Dates: start: 20181101, end: 2018

REACTIONS (9)
  - Dry skin [Not Recovered/Not Resolved]
  - Rash papular [Not Recovered/Not Resolved]
  - Abscess intestinal [Recovering/Resolving]
  - Gastrointestinal fistula [Recovered/Resolved]
  - Gastrointestinal fistula [Recovering/Resolving]
  - Skin exfoliation [Not Recovered/Not Resolved]
  - Arthralgia [Recovered/Resolved]
  - Tendon pain [Recovered/Resolved]
  - Tongue fungal infection [Recovered/Resolved]

NARRATIVE: CASE EVENT DATE: 20181210
